FAERS Safety Report 9536515 (Version 4)
Quarter: 2013Q4

REPORT INFORMATION
  Report Type: Spontaneous
  Country: GB (occurrence: GB)
  Receive Date: 20130919
  Receipt Date: 20131030
  Transmission Date: 20140711
  Serious: Yes (Other)
  Sender: FDA-Public Use
  Company Number: GB-009507513-1308GBR005983

PATIENT
  Age: 19 Year
  Sex: Female

DRUGS (1)
  1. NEXPLANON [Suspect]
     Dosage: UNK
     Route: 059
     Dates: start: 20130725

REACTIONS (7)
  - Abortion spontaneous [Unknown]
  - Unintended pregnancy [Unknown]
  - Spinal pain [Unknown]
  - Food aversion [Unknown]
  - Implant site pain [Unknown]
  - Nausea [Unknown]
  - Vaginal haemorrhage [Unknown]
